FAERS Safety Report 21903369 (Version 1)
Quarter: 2023Q1

REPORT INFORMATION
  Report Type: Spontaneous
  Country: MX (occurrence: None)
  Receive Date: 20230122
  Receipt Date: 20230122
  Transmission Date: 20230417
  Serious: No
  Sender: FDA-Public Use
  Company Number: None

PATIENT
  Age: 91 Year
  Sex: Female
  Weight: 63 kg

DRUGS (6)
  1. ACETAMINOPHEN\TRAMADOL [Suspect]
     Active Substance: ACETAMINOPHEN\TRAMADOL
     Indication: Arthralgia
     Dosage: OTHER QUANTITY : 1 TABLET(S);?FREQUENCY : EVERY 12 HOURS;?
     Route: 048
  2. DONEPEZIL [Concomitant]
     Active Substance: DONEPEZIL
  3. METOPROLOL [Concomitant]
     Active Substance: METOPROLOL
  4. MELATONIN [Concomitant]
     Active Substance: MELATONIN
  5. ENSURE ADVANCE [Concomitant]
  6. Centrum 50 [Concomitant]

REACTIONS (2)
  - Tremor [None]
  - Vomiting [None]

NARRATIVE: CASE EVENT DATE: 20230122
